FAERS Safety Report 10088802 (Version 2)
Quarter: 2014Q2

REPORT INFORMATION
  Report Type: Spontaneous
  Country: US (occurrence: US)
  Receive Date: 20140421
  Receipt Date: 20140427
  Transmission Date: 20141212
  Serious: Yes (Hospitalization, Other)
  Sender: FDA-Public Use
  Company Number: US-009507513-1404USA010784

PATIENT
  Age: 65 Year
  Sex: Male

DRUGS (4)
  1. SINEMET [Suspect]
     Indication: PARKINSON^S DISEASE
     Dosage: 25/100 MG THREE TIMES A DAY AT 06:00, 12:00 AND 18:00
     Route: 048
  2. SINEMET [Suspect]
     Dosage: SA 25/100 MG AT 24:00
     Route: 048
  3. PANTOPRAZOLE [Concomitant]
  4. DILAUDID [Concomitant]

REACTIONS (4)
  - Colostomy [Unknown]
  - Drug effect decreased [Unknown]
  - Gastrostomy [Unknown]
  - Jejunostomy [Unknown]
